FAERS Safety Report 9571120 (Version 7)
Quarter: 2014Q4

REPORT INFORMATION
  Report Type: Report from Study
  Country: DE (occurrence: DE)
  Receive Date: 20131001
  Receipt Date: 20141204
  Transmission Date: 20150529
  Serious: Yes (Hospitalization, Other)
  Sender: FDA-Public Use
  Company Number: PHHY2013DE108519

PATIENT
  Sex: Female
  Weight: 85 kg

DRUGS (6)
  1. ZOLPIDEM [Concomitant]
     Active Substance: ZOLPIDEM\ZOLPIDEM TARTRATE
     Indication: INSOMNIA
     Dosage: 10 MG, QD
     Route: 048
     Dates: start: 20121124
  2. AFINITOR [Suspect]
     Active Substance: EVEROLIMUS
     Indication: BREAST CANCER METASTATIC
     Dosage: 10 MG, QD
     Route: 048
     Dates: start: 20130406, end: 20130730
  3. XGEVA [Concomitant]
     Active Substance: DENOSUMAB
     Indication: METASTASES TO BONE
     Dosage: 120 MG, QMO
     Route: 058
     Dates: start: 20130624
  4. EXEMESTAN HEXAL [Suspect]
     Active Substance: EXEMESTANE
     Indication: PRODUCT USED FOR UNKNOWN INDICATION
     Dosage: 25 MG, UNK
     Route: 065
  5. AFINITOR [Suspect]
     Active Substance: EVEROLIMUS
     Dosage: 5 MG, QD
     Route: 048
     Dates: start: 20130731, end: 20131027
  6. EXEMESTAN HEXAL [Suspect]
     Active Substance: EXEMESTANE
     Route: 065

REACTIONS (10)
  - Palpitations [Unknown]
  - Dyspnoea [Unknown]
  - Pleural effusion [Recovered/Resolved]
  - Cardiac failure [Recovered/Resolved]
  - Hypertension [Unknown]
  - Oedema peripheral [Not Recovered/Not Resolved]
  - C-reactive protein increased [Unknown]
  - Fatigue [Unknown]
  - Atrial fibrillation [Recovered/Resolved]
  - Pulmonary oedema [Unknown]

NARRATIVE: CASE EVENT DATE: 20130806
